FAERS Safety Report 9678961 (Version 4)
Quarter: 2014Q1

REPORT INFORMATION
  Report Type: Spontaneous
  Country: JP (occurrence: JP)
  Receive Date: 20131108
  Receipt Date: 20140119
  Transmission Date: 20141002
  Serious: Yes (Disabling, Congenital Anomaly, Other)
  Sender: FDA-Public Use
  Company Number: JP-ASTRAZENECA-2013SE81890

PATIENT
  Age: 0 Day
  Sex: Female
  Weight: 1.8 kg

DRUGS (15)
  1. SEROQUEL [Suspect]
     Indication: FOETAL EXPOSURE DURING PREGNANCY
     Route: 064
     Dates: end: 20131028
  2. SEROQUEL [Suspect]
     Indication: SCHIZOPHRENIA
     Route: 064
     Dates: end: 20131028
  3. SEROQUEL [Suspect]
     Indication: FOETAL EXPOSURE DURING PREGNANCY
     Route: 063
     Dates: start: 20131029, end: 20131106
  4. SEROQUEL [Suspect]
     Indication: SCHIZOPHRENIA
     Route: 063
     Dates: start: 20131029, end: 20131106
  5. SEROQUEL [Suspect]
     Indication: FOETAL EXPOSURE DURING PREGNANCY
     Route: 063
     Dates: start: 20131121
  6. SEROQUEL [Suspect]
     Indication: SCHIZOPHRENIA
     Route: 063
     Dates: start: 20131121
  7. DEPAS [Suspect]
     Indication: FOETAL EXPOSURE DURING PREGNANCY
     Route: 064
     Dates: end: 20131028
  8. DEPAS [Suspect]
     Indication: SCHIZOPHRENIA
     Route: 064
     Dates: end: 20131028
  9. DEPAS [Suspect]
     Indication: FOETAL EXPOSURE DURING PREGNANCY
     Route: 063
     Dates: start: 20131029, end: 20131106
  10. DEPAS [Suspect]
     Indication: SCHIZOPHRENIA
     Route: 063
     Dates: start: 20131029, end: 20131106
  11. DEPAS [Suspect]
     Indication: FOETAL EXPOSURE DURING PREGNANCY
     Route: 063
     Dates: start: 20131121
  12. DEPAS [Suspect]
     Indication: SCHIZOPHRENIA
     Route: 063
     Dates: start: 20131121
  13. BIOFERMIN [Concomitant]
     Indication: FOETAL EXPOSURE DURING PREGNANCY
     Route: 065
  14. SELBEX [Concomitant]
     Indication: FOETAL EXPOSURE DURING PREGNANCY
  15. CEFMETAZOLE SODIUM [Concomitant]
     Indication: FOETAL EXPOSURE DURING PREGNANCY

REACTIONS (7)
  - Apnoeic attack [Recovered/Resolved]
  - Trisomy 18 [Not Recovered/Not Resolved]
  - Fallot^s tetralogy [Not Recovered/Not Resolved]
  - Talipes [Not Recovered/Not Resolved]
  - Tremor neonatal [Recovered/Resolved]
  - Irritability [Recovered/Resolved]
  - Exposure during breast feeding [Unknown]
